FAERS Safety Report 6824735-6 (Version None)
Quarter: 2010Q3

REPORT INFORMATION
  Report Type: 
  Country: None (occurrence: None)
  Receive Date: 20100708
  Receipt Date: 20061114
  Transmission Date: 20110219
  Serious: No
  Sender: FDA-Public Use
  Company Number: US-PFIZER INC-2006142812

PATIENT
  Sex: Female
  Weight: 90.26 kg

DRUGS (7)
  1. CHANTIX [Suspect]
     Indication: SMOKING CESSATION THERAPY
     Dates: start: 20061110
  2. HALOPERIDOL [Concomitant]
  3. COGENTIN [Concomitant]
  4. ZETIA [Concomitant]
  5. NITROGLYCERIN [Concomitant]
  6. PLAVIX [Concomitant]
     Dates: start: 20061001
  7. ACETYLSALICYLIC ACID [Concomitant]
     Dates: start: 20061001

REACTIONS (2)
  - HYPERPHAGIA [None]
  - INCREASED APPETITE [None]
